FAERS Safety Report 5425627-X (Version None)
Quarter: 2007Q3

REPORT INFORMATION
  Report Type: 
  Country: None (occurrence: None)
  Receive Date: 20070731
  Receipt Date: 20070403
  Transmission Date: 20080115
  Serious: No
  Sender: FDA-Public Use
  Company Number: US200704001027

PATIENT
  Age: 38 Year
  Sex: Female

DRUGS (10)
  1. BYETTA [Suspect]
     Indication: HEPATIC STEATOSIS
     Dosage: 5 UG, 2/D, SUBCUTANEOUS
     Route: 058
     Dates: start: 20070327, end: 20070403
  2. EXENATIDE 5MCG PEN, DISPOSABLE DEVICE (EXENATIDE PEN (5MCG)) PEN,DISPO [Concomitant]
  3. EFFEXOR XR [Concomitant]
  4. ATIVAN [Concomitant]
  5. RESTORIL [Concomitant]
  6. PROTONIX [Concomitant]
  7. NORVASC [Concomitant]
  8. HYDROCHLOROTHIAZIDE [Concomitant]
  9. ZOCOR [Concomitant]
  10. DARVOCET-N 100 [Concomitant]

REACTIONS (7)
  - ABDOMINAL PAIN [None]
  - ANAL DISCOMFORT [None]
  - BLOOD PRESSURE INCREASED [None]
  - DIARRHOEA [None]
  - DIZZINESS [None]
  - HAEMATOCHEZIA [None]
  - NAUSEA [None]
